FAERS Safety Report 21246242 (Version 1)
Quarter: 2022Q3

REPORT INFORMATION
  Report Type: Spontaneous
  Country: HR (occurrence: HR)
  Receive Date: 20220824
  Receipt Date: 20220824
  Transmission Date: 20221026
  Serious: Yes (Other)
  Sender: FDA-Public Use
  Company Number: None

PATIENT
  Age: 74 Year
  Sex: Female
  Weight: 72 kg

DRUGS (9)
  1. OXALIPLATIN [Suspect]
     Active Substance: OXALIPLATIN
     Indication: Adenocarcinoma of colon
     Dates: start: 20220727, end: 20220727
  2. DEXAMETHASONE [Concomitant]
     Active Substance: DEXAMETHASONE
     Indication: Premedication
     Dosage: 16 MG U 100 ML F.O. I.V. , UNIT DOSE : 16 MG  , FREQUENCY TIME : 1 DAY  , DURATION : 10 MIN
     Dates: start: 20220727, end: 20220727
  3. METFORMIN HYDROCHLORIDE\VILDAGLIPTIN [Concomitant]
     Active Substance: METFORMIN HYDROCHLORIDE\VILDAGLIPTIN
     Indication: Diabetes mellitus
     Dosage: UNK
  4. NORMABEL [Concomitant]
     Active Substance: DIAZEPAM
     Indication: Hypertension
     Dosage: UNIT DOSE : 5 MG  , FREQUENCY TIME : 1 DAY   , DURATION : 1 DAY
     Dates: start: 20220727, end: 20220727
  5. LOSARTAN POTASSIUM [Concomitant]
     Active Substance: LOSARTAN POTASSIUM
     Indication: Hypertension
     Dosage: UNK
  6. APREPITANT [Concomitant]
     Active Substance: APREPITANT
     Indication: Prophylaxis of nausea and vomiting
     Dosage: UNIT DOSE :125 MG  , FREQUENCY TIME : 1 DAY  , DURATION : 1 DAY
     Dates: start: 20220727, end: 20220727
  7. AMLODIPINE BESYLATE [Concomitant]
     Active Substance: AMLODIPINE BESYLATE
     Indication: Hypertension
     Dosage: UNIT DOSE : 5 MG , FREQUENCY TIME : 1 DAY  , DURATION : 1 DAY
     Dates: start: 20220727, end: 20220727
  8. GRANISETRON [Concomitant]
     Active Substance: GRANISETRON
     Indication: Prophylaxis of nausea and vomiting
     Dosage: 3MG/3ML , UNIT DOSE : 1 DF  , FREQUENCY TIME : 1 DAY  , DURATION : 1 DAY
     Dates: start: 20220727, end: 20220727
  9. METOCLOPRAMIDE [Concomitant]
     Active Substance: METOCLOPRAMIDE
     Indication: Prophylaxis of nausea and vomiting
     Dosage: 10 MG/2ML, 1 AMP IN F.O. , METOKLOPRAMID , UNIT DOSE : 1 DF  , FREQUENCY TIME : 1 DAY  , DURATION :
     Dates: start: 20220727, end: 20220727

REACTIONS (7)
  - Paraesthesia [Recovering/Resolving]
  - Dysphonia [Recovering/Resolving]
  - Eyelid oedema [Recovering/Resolving]
  - Asthenia [Recovering/Resolving]
  - Hypoaesthesia [Recovering/Resolving]
  - Paraesthesia [Recovering/Resolving]
  - Blood pressure increased [Recovering/Resolving]

NARRATIVE: CASE EVENT DATE: 20220727
